FAERS Safety Report 24283987 (Version 4)
Quarter: 2024Q4

REPORT INFORMATION
  Report Type: Spontaneous
  Country: PL (occurrence: PL)
  Receive Date: 20240905
  Receipt Date: 20241010
  Transmission Date: 20250114
  Serious: Yes (Congenital Anomaly, Other)
  Sender: AUROBINDO
  Company Number: PL-LESVI-2024004743

PATIENT
  Sex: Male
  Weight: 2.48 kg

DRUGS (12)
  1. LAMOTRIGINE [Suspect]
     Active Substance: LAMOTRIGINE
     Indication: Epilepsy
     Dosage: 100 MILLIGRAM, EVERY OTHER DAY (2 ? 100 MG)
     Route: 064
  2. LAMOTRIGINE [Suspect]
     Active Substance: LAMOTRIGINE
     Dosage: 250 MILLIGRAM, EVERY OTHER DAY (2 ? 250 MG)
     Route: 064
  3. LEVETIRACETAM [Suspect]
     Active Substance: LEVETIRACETAM
     Indication: Epilepsy
     Dosage: 1500 MILLIGRAM, EVERY OTHER DAY (2 ? 1,500 MG)
     Route: 064
  4. LEVETIRACETAM [Suspect]
     Active Substance: LEVETIRACETAM
     Dosage: 3250 MILLIGRAM
     Route: 064
  5. BUSPIRONE [Suspect]
     Active Substance: BUSPIRONE HYDROCHLORIDE
     Indication: Anxiety
     Dosage: UNK
     Route: 064
  6. BUSPIRONE [Suspect]
     Active Substance: BUSPIRONE HYDROCHLORIDE
     Indication: Depression
  7. DIAZEPAM [Suspect]
     Active Substance: DIAZEPAM
     Indication: Status epilepticus
     Dosage: 10 MILLIGRAM (10 MG OF DIAZEPAM IN BOLUS)
     Route: 064
  8. LACOSAMIDE [Suspect]
     Active Substance: LACOSAMIDE
     Indication: Epilepsy
     Dosage: 200 MILLIGRAM, EVERY OTHER DAY (2 ? 200 MG)
     Route: 064
  9. RISPERIDONE [Suspect]
     Active Substance: RISPERIDONE
     Indication: Anxiety
     Dosage: UNK
     Route: 064
  10. RISPERIDONE [Suspect]
     Active Substance: RISPERIDONE
     Indication: Depression
  11. TRAZODONE [Suspect]
     Active Substance: TRAZODONE HYDROCHLORIDE
     Indication: Anxiety
     Dosage: UNK
     Route: 064
  12. TRAZODONE [Suspect]
     Active Substance: TRAZODONE HYDROCHLORIDE
     Indication: Depression

REACTIONS (6)
  - Congenital anomaly [Unknown]
  - Karyotype analysis abnormal [Not Recovered/Not Resolved]
  - Low birth weight baby [Unknown]
  - Premature baby [Recovered/Resolved]
  - Foetal exposure during pregnancy [Not Recovered/Not Resolved]
  - Maternal exposure during pregnancy [Unknown]
